FAERS Safety Report 17452807 (Version 1)
Quarter: 2020Q1

REPORT INFORMATION
  Report Type: Spontaneous
  Country: FR (occurrence: FR)
  Receive Date: 20200224
  Receipt Date: 20200224
  Transmission Date: 20200409
  Serious: Yes (Hospitalization)
  Sender: FDA-Public Use
  Company Number: FR-MYLANLABS-2020M1018822

PATIENT
  Age: 39 Year
  Sex: Male
  Weight: 79 kg

DRUGS (4)
  1. HOLOXAN [Suspect]
     Active Substance: IFOSFAMIDE
     Indication: EXTRA-OSSEOUS EWING^S SARCOMA
     Dosage: 6500 MILLIGRAM
     Route: 041
     Dates: start: 20191104, end: 20191105
  2. DOXORUBICINE ACCORD [Suspect]
     Active Substance: DOXORUBICIN
     Indication: EXTRA-OSSEOUS EWING^S SARCOMA
     Dosage: 44 MILLIGRAM
     Route: 041
     Dates: start: 20191104, end: 20191107
  3. ONCOVIN [Suspect]
     Active Substance: VINCRISTINE SULFATE
     Indication: EXTRA-OSSEOUS EWING^S SARCOMA
     Dosage: 2 MILLIGRAM
     Route: 040
     Dates: start: 20191104, end: 20191104
  4. ETOPOSIDE MYLAN [Suspect]
     Active Substance: ETOPOSIDE
     Indication: EXTRA-OSSEOUS EWING^S SARCOMA
     Dosage: 330 MILLIGRAM
     Route: 041
     Dates: start: 20191104, end: 20191107

REACTIONS (3)
  - Cardiac failure [Recovered/Resolved]
  - Mucosal inflammation [Recovered/Resolved]
  - Febrile bone marrow aplasia [Recovered/Resolved]

NARRATIVE: CASE EVENT DATE: 20191107
